FAERS Safety Report 4652408-7 (Version None)
Quarter: 2005Q2

REPORT INFORMATION
  Report Type: 
  Country: None (occurrence: None)
  Receive Date: 20050504
  Receipt Date: 20050426
  Transmission Date: 20051028
  Serious: Yes (Hospitalization)
  Sender: FDA-Public Use
  Company Number: FR-SANOFI-SYNTHELABO-F01200500643

PATIENT
  Sex: Male
  Weight: 60 kg

DRUGS (6)
  1. OXALIPLATIN [Suspect]
     Indication: OESOPHAGEAL CARCINOMA
     Route: 042
  2. FLUOROURACIL [Suspect]
     Route: 042
  3. LEUCOVORIN CALCIUM [Suspect]
     Route: 042
  4. RADIOTHERAPY [Concomitant]
     Indication: OESOPHAGEAL CARCINOMA
     Dosage: TOTAL DOSE ADMINISTERED BEFORE SAE: 48 GY
     Route: 050
     Dates: start: 20050421, end: 20050421
  5. ODRIK [Concomitant]
  6. CARDEGIC [Concomitant]

REACTIONS (2)
  - DYSPHAGIA [None]
  - NEUTROPENIA [None]
